FAERS Safety Report 8026689-6 (Version None)
Quarter: 2012Q1

REPORT INFORMATION
  Report Type: 
  Country: None (occurrence: None)
  Receive Date: 20120106
  Receipt Date: 20111230
  Transmission Date: 20120608
  Serious: No
  Sender: FDA-Public Use
  Company Number: US-BIOGENIDEC-2012BI000146

PATIENT
  Age: 31 Year
  Sex: Female

DRUGS (2)
  1. TYSABRI [Suspect]
     Indication: MULTIPLE SCLEROSIS
     Route: 042
     Dates: start: 20090216, end: 20111128
  2. TYSABRI [Suspect]
     Route: 042
     Dates: start: 20071218, end: 20080814

REACTIONS (1)
  - MULTIPLE SCLEROSIS RELAPSE [None]
